FAERS Safety Report 18133299 (Version 3)
Quarter: 2021Q3

REPORT INFORMATION
  Report Type: Report from Study
  Country: FR (occurrence: FR)
  Receive Date: 20200811
  Receipt Date: 20210929
  Transmission Date: 20211014
  Serious: Yes (Congenital Anomaly, Other)
  Sender: FDA-Public Use
  Company Number: FR-MYLANLABS-2020M1070646

PATIENT

DRUGS (1)
  1. EFAVIRENZ. [Suspect]
     Active Substance: EFAVIRENZ
     Indication: HIV INFECTION
     Dosage: (AT FIRST TRIMESTER)
     Route: 064

REACTIONS (2)
  - Foetal exposure during pregnancy [Unknown]
  - Pachygyria [Unknown]
